FAERS Safety Report 4709906-7 (Version None)
Quarter: 2005Q3

REPORT INFORMATION
  Report Type: 
  Country: None (occurrence: None)
  Receive Date: 20050707
  Receipt Date: 20050620
  Transmission Date: 20060218
  Serious: Yes (Other)
  Sender: FDA-Public Use
  Company Number: USA0506100924

PATIENT
  Age: 60 Year
  Sex: Female

DRUGS (2)
  1. GEMZAR [Suspect]
     Indication: LUNG NEOPLASM MALIGNANT
     Dates: start: 20040910, end: 20041216
  2. CARBOPLATIN [Concomitant]

REACTIONS (4)
  - DISEASE PROGRESSION [None]
  - RADIATION SKIN INJURY [None]
  - RASH [None]
  - THERMAL BURN [None]
